FAERS Safety Report 20385963 (Version 2)
Quarter: 2022Q1

REPORT INFORMATION
  Report Type: Spontaneous
  Country: US (occurrence: US)
  Receive Date: 20220127
  Receipt Date: 20220209
  Transmission Date: 20220423
  Serious: Yes (Other)
  Sender: FDA-Public Use
  Company Number: US-PFIZER INC-202200057062

PATIENT
  Age: 77 Year
  Sex: Female

DRUGS (1)
  1. DETROL [Suspect]
     Active Substance: TOLTERODINE TARTRATE
     Indication: Bladder cancer
     Dosage: 2 MG, 2X/DAY (ONE TABLET IN MORNING AND ONE TABLET AT NIGHT)

REACTIONS (2)
  - Tooth infection [Unknown]
  - Off label use [Unknown]
